FAERS Safety Report 8873266 (Version 2)
Quarter: 2012Q4

REPORT INFORMATION
  Report Type: 
  Country: US (occurrence: US)
  Receive Date: 20121029
  Receipt Date: 20121217
  Transmission Date: 20130627
  Serious: Yes (Other)
  Sender: FDA-Public Use
  Company Number: US-PFIZER INC-2012265336

PATIENT
  Sex: Female

DRUGS (2)
  1. XALATAN [Suspect]
     Dosage: both eyes/1xday at night
     Route: 047
     Dates: end: 2011
  2. LATANOPROST [Suspect]
     Indication: GLAUCOMA
     Dosage: UNK
     Route: 047
     Dates: start: 201211

REACTIONS (3)
  - Glaucoma [Unknown]
  - Eye disorder [Unknown]
  - Suspected counterfeit product [Unknown]
